FAERS Safety Report 15070317 (Version 1)
Quarter: 2018Q2

REPORT INFORMATION
  Report Type: Spontaneous
  Country: US (occurrence: US)
  Receive Date: 20180626
  Receipt Date: 20180626
  Transmission Date: 20180711
  Serious: No
  Sender: FDA-Public Use
  Company Number: US-009507513-1806USA008228

PATIENT
  Age: 17 Year
  Sex: Female
  Weight: 85.71 kg

DRUGS (3)
  1. NEXPLANON [Suspect]
     Active Substance: ETONOGESTREL
     Indication: CONTRACEPTION
     Dosage: 1 ROD UP TO 3 YEARS IN LEFT ARM
     Route: 059
     Dates: start: 20160208
  2. HUMALOG [Concomitant]
     Active Substance: INSULIN LISPRO
     Dosage: 1X DAILY
  3. METFORMIN [Concomitant]
     Active Substance: METFORMIN HYDROCHLORIDE
     Dosage: 1X DAILY

REACTIONS (4)
  - Mass [Unknown]
  - Purulence [Unknown]
  - Metrorrhagia [Unknown]
  - Cyst [Unknown]

NARRATIVE: CASE EVENT DATE: 201802
